FAERS Safety Report 10086210 (Version 1)
Quarter: 2014Q2

REPORT INFORMATION
  Report Type: Spontaneous
  Country: RO (occurrence: None)
  Receive Date: 20140416
  Receipt Date: 20140416
  Transmission Date: 20141212
  Serious: Yes (Hospitalization)
  Sender: FDA-Public Use
  Company Number: 7282716

PATIENT
  Age: 34 Year
  Sex: Female

DRUGS (3)
  1. THIAMAZOLE [Suspect]
     Indication: HYPOTHYROIDISM
  2. THIAMAZOLE [Suspect]
     Indication: AUTOIMMUNE THYROIDITIS
  3. LEVOTHYROXINE (LEVOTHYROXINE) (LEVOTHYROXINE) [Suspect]
     Indication: HYPOTHYROIDISM

REACTIONS (4)
  - Hepatitis C [None]
  - Hypothyroidism [None]
  - Eye disorder [None]
  - Maternal exposure during pregnancy [None]
